FAERS Safety Report 7073492-X (Version None)
Quarter: 2010Q4

REPORT INFORMATION
  Report Type: 
  Country: None (occurrence: None)
  Receive Date: 20101029
  Receipt Date: 20100812
  Transmission Date: 20110411
  Serious: No
  Sender: FDA-Public Use
  Company Number: A0867409A

PATIENT
  Sex: Female

DRUGS (3)
  1. ADVAIR DISKUS 100/50 [Suspect]
     Indication: CHRONIC OBSTRUCTIVE PULMONARY DISEASE
     Dosage: 1PUFF TWICE PER DAY
     Route: 055
     Dates: start: 20090401
  2. SPIRIVA [Concomitant]
  3. XOPENEX [Concomitant]

REACTIONS (6)
  - COUGH [None]
  - DRY MOUTH [None]
  - HEADACHE [None]
  - LUNG DISORDER [None]
  - MALAISE [None]
  - PRODUCT QUALITY ISSUE [None]
